FAERS Safety Report 7802299-8 (Version None)
Quarter: 2011Q4

REPORT INFORMATION
  Report Type: 
  Country: None (occurrence: None)
  Receive Date: 20111007
  Receipt Date: 20110929
  Transmission Date: 20120403
  Serious: Yes (Death, Hospitalization)
  Sender: FDA-Public Use
  Company Number: AU-MPIJNJ-2010-06218

PATIENT

DRUGS (7)
  1. DIAMICRON [Concomitant]
     Dosage: 120 MG, UNK
  2. BICOR                              /00188902/ [Concomitant]
     Dosage: 5 MG, UNK
  3. TEGRETOL [Concomitant]
     Dosage: 100 MG, UNK
  4. LEVOTHYROXINE SODIUM [Concomitant]
     Dosage: 100 UNK, UNK
  5. PANTOPRAZOLE [Concomitant]
     Dosage: 40 MG, UNK
  6. VELCADE [Suspect]
     Indication: MULTIPLE MYELOMA
     Dosage: 1.8 MG, UNK
     Route: 065
  7. TEMAZEPAM [Concomitant]
     Dosage: 10 MG, UNK

REACTIONS (3)
  - DEATH [None]
  - DYSPNOEA EXERTIONAL [None]
  - PULMONARY HYPERTENSION [None]
